FAERS Safety Report 8187445-1 (Version None)
Quarter: 2012Q1

REPORT INFORMATION
  Report Type: 
  Country: None (occurrence: None)
  Receive Date: 20120306
  Receipt Date: 20120302
  Transmission Date: 20120608
  Serious: Yes (Hospitalization)
  Sender: FDA-Public Use
  Company Number: US-BAYER-2012-017003

PATIENT
  Age: 35 Year
  Sex: Female

DRUGS (7)
  1. YASMIN [Suspect]
  2. DROSPIRENONE AND ETHINYL ESTRADIOL [Suspect]
  3. TRAZODONE HCL [Concomitant]
     Dosage: 50 MG, QD
     Route: 048
  4. ANILIDES [Concomitant]
  5. YAZ [Suspect]
  6. NEURONTIN [Concomitant]
     Dosage: 600 MG, QD
  7. TOPAMAX [Concomitant]
     Dosage: 50 MG, BID

REACTIONS (6)
  - INJURY [None]
  - PULMONARY EMBOLISM [None]
  - PAIN [None]
  - EMOTIONAL DISTRESS [None]
  - ANHEDONIA [None]
  - GENERAL PHYSICAL HEALTH DETERIORATION [None]
